FAERS Safety Report 18703078 (Version 1)
Quarter: 2021Q1

REPORT INFORMATION
  Report Type: Spontaneous
  Country: IE (occurrence: IE)
  Receive Date: 20210105
  Receipt Date: 20210105
  Transmission Date: 20210419
  Serious: Yes (Life-Threatening, Hospitalization, Other)
  Sender: FDA-Public Use
  Company Number: NVSC2021IE000591

PATIENT
  Age: 23 Year
  Sex: Male
  Weight: 95.34 kg

DRUGS (5)
  1. PANTOFLUX [DOMPERIDONE/PANTOPRAZOLE SODIUM SESQUIHYDRATE] [Suspect]
     Active Substance: DOMPERIDONE\PANTOPRAZOLE SODIUM
     Indication: HELICOBACTER INFECTION
     Dosage: 40 MG, Q12H (ALSO REPORTED AS 40 MG BD FOR 2 WEEKS THEN ONCE DAILY FOR 4 WEEKS. START DATE ALSO REPO
     Route: 048
     Dates: start: 20201207
  2. PINAMOX [Suspect]
     Active Substance: AMOXICILLIN
     Indication: HELICOBACTER INFECTION
     Dosage: 500 MG, Q12H (2 BD FOR 2 WEEKS, 1 G DAILY START DATE ALSO REPORTED AS 05 DEC 2020)
     Route: 048
     Dates: start: 20201207, end: 20201219
  3. CLARITHROMYCIN. [Suspect]
     Active Substance: CLARITHROMYCIN
     Indication: HELICOBACTER INFECTION
     Dosage: 500 MG, Q12H (500MG BD FOR 2 WEEK. 1 GM DAILY. ALSO REPORTED THERAPY START DATE 05 DEC 2020)
     Route: 048
     Dates: start: 20201207, end: 20201219
  4. PANTOFLUX [DOMPERIDONE/PANTOPRAZOLE SODIUM SESQUIHYDRATE] [Suspect]
     Active Substance: DOMPERIDONE\PANTOPRAZOLE SODIUM
     Indication: DUODENAL ULCER
  5. PANTOFLUX [DOMPERIDONE/PANTOPRAZOLE SODIUM SESQUIHYDRATE] [Suspect]
     Active Substance: DOMPERIDONE\PANTOPRAZOLE SODIUM
     Indication: GASTRITIS
     Dosage: 40 MG, QD (CIRCA 11 WEEKS)
     Route: 048
     Dates: start: 20200924, end: 20201207

REACTIONS (6)
  - Nervous system disorder [Unknown]
  - Paranoia [Not Recovered/Not Resolved]
  - Derealisation [Not Recovered/Not Resolved]
  - Panic attack [Unknown]
  - Psychotic disorder [Unknown]
  - Anxiety [Not Recovered/Not Resolved]

NARRATIVE: CASE EVENT DATE: 20201213
